FAERS Safety Report 10214716 (Version 1)
Quarter: 2014Q2

REPORT INFORMATION
  Report Type: Report from Study
  Country: US (occurrence: US)
  Receive Date: 20140603
  Receipt Date: 20140603
  Transmission Date: 20141212
  Serious: Yes (Hospitalization)
  Sender: FDA-Public Use
  Company Number: US-PURDUE-USA-2014-0114427

PATIENT
  Age: 37 Year
  Sex: Female

DRUGS (3)
  1. OXY CR TAB [Suspect]
     Indication: FIBROMYALGIA
     Dosage: UNK
     Route: 048
     Dates: start: 201304
  2. OXY CR TAB [Suspect]
     Indication: INTERVERTEBRAL DISC DEGENERATION
     Dosage: 60 MG, Q8H
     Route: 048
     Dates: start: 20140510
  3. OXY CR TAB [Suspect]
     Indication: PAIN

REACTIONS (1)
  - Kidney infection [Unknown]
